FAERS Safety Report 12640833 (Version 5)
Quarter: 2016Q3

REPORT INFORMATION
  Report Type: Report from Study
  Country: US (occurrence: US)
  Receive Date: 20160810
  Receipt Date: 20160921
  Transmission Date: 20161109
  Serious: Yes (Hospitalization)
  Sender: FDA-Public Use
  Company Number: US-ACTELION-A-US2016-140186

PATIENT
  Age: 57 Year
  Sex: Female

DRUGS (3)
  1. VELETRI [Suspect]
     Active Substance: EPOPROSTENOL
     Indication: PULMONARY HYPERTENSION
     Dosage: 4 NG/KG, PER MIN
     Route: 042
     Dates: start: 20160713
  2. UPTRAVI [Suspect]
     Active Substance: SELEXIPAG
     Indication: PULMONARY HYPERTENSION
     Dosage: 400 MCG, BID
     Route: 048
     Dates: start: 20160329
  3. OPSUMIT [Suspect]
     Active Substance: MACITENTAN
     Indication: PULMONARY HYPERTENSION
     Dosage: 10 MG, QD
     Route: 048
     Dates: start: 20141016

REACTIONS (13)
  - Skin irritation [Unknown]
  - Catheter site rash [Unknown]
  - Blood pressure abnormal [Unknown]
  - Diarrhoea [Recovered/Resolved]
  - Flushing [Unknown]
  - Inflammation [Unknown]
  - Dyspnoea [Unknown]
  - Catheter management [Unknown]
  - Pulmonary oedema [Unknown]
  - Device dislocation [Unknown]
  - Catheter site erythema [Unknown]
  - Catheter site pain [Unknown]
  - Headache [Unknown]

NARRATIVE: CASE EVENT DATE: 20160816
